FAERS Safety Report 7403221-9 (Version None)
Quarter: 2011Q2

REPORT INFORMATION
  Report Type: 
  Country: None (occurrence: None)
  Receive Date: 20110408
  Receipt Date: 20110401
  Transmission Date: 20111010
  Serious: Yes (Other)
  Sender: FDA-Public Use
  Company Number: CA-GILEAD-E2B_00001183

PATIENT
  Sex: Male

DRUGS (5)
  1. FUROSEMIDE [Concomitant]
     Route: 065
  2. POTASSIUM [Concomitant]
     Route: 065
  3. AMBRISENTAN [Suspect]
     Indication: PULMONARY HYPERTENSION
     Dosage: 5MG PER DAY
     Route: 048
     Dates: start: 20100313
  4. INHALER [Concomitant]
     Route: 065
  5. VIAGRA [Concomitant]
     Route: 065

REACTIONS (2)
  - FOOT FRACTURE [None]
  - HYPOAESTHESIA [None]
